FAERS Safety Report 5719328-8 (Version None)
Quarter: 2008Q2

REPORT INFORMATION
  Report Type: 
  Country: None (occurrence: None)
  Receive Date: 20080428
  Receipt Date: 20080414
  Transmission Date: 20081010
  Serious: No
  Sender: FDA-Public Use
  Company Number: US-ELI_LILLY_AND_COMPANY-US200803005874

PATIENT
  Sex: Female

DRUGS (10)
  1. FORTEO [Suspect]
     Indication: OSTEOPOROSIS
     Dosage: 20 UG, DAILY (1/D)
     Dates: start: 20071022
  2. CALCIUM CITRATE [Concomitant]
     Dosage: 1000 MG, UNK
  3. VITAMIN D3 [Concomitant]
     Dosage: 2000 IU, UNK
  4. FISH OIL [Concomitant]
  5. TYLENOL                                 /SCH/ [Concomitant]
  6. ELMIRON [Concomitant]
  7. NEXIUM [Concomitant]
  8. ZANTAC [Concomitant]
  9. LIPITOR [Concomitant]
  10. THYROID TAB [Concomitant]

REACTIONS (3)
  - ARTHRALGIA [None]
  - PAIN IN EXTREMITY [None]
  - PROCEDURAL PAIN [None]
